FAERS Safety Report 9895417 (Version 1)
Quarter: 2014Q1

REPORT INFORMATION
  Report Type: Spontaneous
  Country: US (occurrence: US)
  Receive Date: 20140213
  Receipt Date: 20140213
  Transmission Date: 20141002
  Serious: No
  Sender: FDA-Public Use
  Company Number: US-BRISTOL-MYERS SQUIBB COMPANY-17360819

PATIENT
  Age: 58 Year
  Sex: Male
  Weight: 122.45 kg

DRUGS (15)
  1. ABATACEPT SUBQ INJECTION 125MG/ML [Suspect]
     Dosage: 1DF = 125MG/1ML?4PACKS
     Route: 058
  2. PREDNISONE [Concomitant]
  3. LIPITOR [Concomitant]
  4. DIOVAN [Concomitant]
  5. LEFLUNOMIDE [Concomitant]
  6. METFORMIN HCL [Concomitant]
  7. HYDROXYCHLOROQUINE [Concomitant]
  8. AVODART [Concomitant]
  9. ALLOPURINOL [Concomitant]
  10. CHLORTHALIDONE [Concomitant]
  11. LEXAPRO [Concomitant]
  12. BUPROPION [Concomitant]
  13. FOLIC ACID [Concomitant]
  14. CLOPIDOGREL BISULFATE [Concomitant]
  15. ACETYLSALICYLIC ACID [Concomitant]

REACTIONS (1)
  - Drug ineffective [Unknown]
